FAERS Safety Report 23623542 (Version 1)
Quarter: 2024Q1

REPORT INFORMATION
  Report Type: Spontaneous
  Country: DE (occurrence: DE)
  Receive Date: 20240312
  Receipt Date: 20240312
  Transmission Date: 20240410
  Serious: Yes (Other)
  Sender: FDA-Public Use
  Company Number: DE-PFIZER INC-202400024819

PATIENT
  Age: 90 Year
  Sex: Male
  Weight: 72 kg

DRUGS (6)
  1. VYNDAQEL [Suspect]
     Active Substance: TAFAMIDIS MEGLUMINE
     Dosage: 61 MG, 1X/DAY
     Route: 048
     Dates: start: 2018, end: 2024
  2. CANDESARTAN [Concomitant]
     Active Substance: CANDESARTAN
     Dosage: 0.5 DF, 2X/DAY, SINCE YEARS
  3. METOPROLOL [Concomitant]
     Active Substance: METOPROLOL
     Dosage: 0.5 DF, DAILY SINCE YEARS
  4. ELIQUIS [Concomitant]
     Active Substance: APIXABAN
     Dosage: 2.5 MG, 2X/DAY SINCE YEARS
  5. TAMSULOSIN [Concomitant]
     Active Substance: TAMSULOSIN
     Dosage: 0.4 MG, DAILY SINCE YEARS
  6. ATORVASTATIN [Concomitant]
     Active Substance: ATORVASTATIN
     Dosage: 40 MG, DAILY SINCE YEARS

REACTIONS (4)
  - Abdominal pain upper [Recovering/Resolving]
  - Oropharyngeal pain [Recovering/Resolving]
  - Gastrooesophageal reflux disease [Recovering/Resolving]
  - Insomnia [Recovering/Resolving]
